FAERS Safety Report 7351079-9 (Version None)
Quarter: 2011Q1

REPORT INFORMATION
  Report Type: 
  Country: None (occurrence: None)
  Receive Date: 20110314
  Receipt Date: 20110211
  Transmission Date: 20110831
  Serious: Yes (Hospitalization, Other)
  Sender: FDA-Public Use
  Company Number: US-BAYER-201040574NA

PATIENT
  Sex: Female
  Weight: 74.83 kg

DRUGS (4)
  1. SERTRALINE [Concomitant]
     Indication: DEPRESSION
     Dosage: 150 MG, QD
     Route: 048
     Dates: start: 20050601
  2. YAZ [Suspect]
     Indication: ACNE
     Dosage: UNK
     Route: 048
     Dates: start: 20020101, end: 20080306
  3. YASMIN [Suspect]
     Indication: ACNE
     Dosage: UNK
     Route: 048
     Dates: start: 20020101, end: 20080306
  4. GABAPENTIN [Concomitant]
     Indication: RESTLESS LEGS SYNDROME
     Dosage: 300 MG, QD
     Route: 048
     Dates: start: 20070801

REACTIONS (6)
  - THROMBOSIS [None]
  - DEEP VEIN THROMBOSIS [None]
  - TRANSIENT ISCHAEMIC ATTACK [None]
  - PULMONARY EMBOLISM [None]
  - CHEST PAIN [None]
  - DYSPNOEA [None]
